FAERS Safety Report 8874097 (Version 1)
Quarter: 2012Q4

REPORT INFORMATION
  Report Type: 
  Country: US (occurrence: US)
  Receive Date: 20121023
  Receipt Date: 20121023
  Transmission Date: 20130627
  Serious: Yes (Death)
  Sender: FDA-Public Use
  Company Number: US-ROCHE-1129802

PATIENT
  Age: 53 Year
  Sex: Female

DRUGS (5)
  1. HERCEPTIN [Suspect]
     Indication: LUNG NEOPLASM MALIGNANT
     Dosage: loading dose 329 mg
     Route: 065
     Dates: start: 19990125
  2. HERCEPTIN [Suspect]
     Dosage: maintenance dose 165 mg
     Route: 065
  3. GEMZAR [Concomitant]
  4. EPOGEN [Concomitant]
     Dosage: 60,000
     Route: 058
  5. HEPARIN [Concomitant]
     Dosage: adjusted dose
     Route: 058
     Dates: start: 19990118

REACTIONS (2)
  - Death [Fatal]
  - Nausea [Unknown]
